FAERS Safety Report 8839392 (Version 1)
Quarter: 2012Q4

REPORT INFORMATION
  Report Type: Spontaneous
  Country: US (occurrence: None)
  Receive Date: 20121011
  Receipt Date: 20121011
  Transmission Date: 20130627
  Serious: Yes (Other)
  Sender: FDA-Public Use
  Company Number: None

PATIENT
  Age: 67 Year
  Sex: Female
  Weight: 73.03 kg

DRUGS (3)
  1. PROLIA [Suspect]
     Indication: OSTEOPOROSIS
     Dosage: Q 6 months
     Route: 060
     Dates: start: 20111212, end: 20111212
  2. ELMIRON [Concomitant]
  3. COREG [Concomitant]

REACTIONS (6)
  - Sinusitis [None]
  - Fatigue [None]
  - Atrial fibrillation [None]
  - Blood pressure increased [None]
  - Heart rate decreased [None]
  - Respiratory tract infection [None]
